FAERS Safety Report 24935602 (Version 2)
Quarter: 2025Q1

REPORT INFORMATION
  Report Type: Spontaneous
  Country: CN (occurrence: CN)
  Receive Date: 20250206
  Receipt Date: 20250212
  Transmission Date: 20250408
  Serious: Yes (Hospitalization)
  Sender: BOEHRINGER INGELHEIM
  Company Number: CN-Komodo Health-a23aa000005eRxtAAE

PATIENT
  Age: 40 Year
  Sex: Female

DRUGS (2)
  1. MOBIC [Suspect]
     Active Substance: MELOXICAM
     Indication: Back pain
     Dates: start: 20250121
  2. MOBIC [Suspect]
     Active Substance: MELOXICAM
     Indication: Spinal pain

REACTIONS (2)
  - Dermatitis allergic [Recovered/Resolved]
  - Hypocalcaemia [Recovered/Resolved]

NARRATIVE: CASE EVENT DATE: 20250122
